FAERS Safety Report 26155403 (Version 1)
Quarter: 2025Q4

REPORT INFORMATION
  Report Type: Spontaneous
  Country: US (occurrence: US)
  Receive Date: 20251215
  Receipt Date: 20251215
  Transmission Date: 20260118
  Serious: Yes (Life-Threatening, Hospitalization)
  Sender: Atnahs Healthcare
  Company Number: US-MLMSERVICE-20251205-PI741661-00119-1

PATIENT

DRUGS (1)
  1. DIAZEPAM [Suspect]
     Active Substance: DIAZEPAM
     Indication: Alcohol withdrawal syndrome
     Dosage: TOTAL OF 1040 MG DIAZEPAM OVER NINE DAYS
     Route: 065

REACTIONS (2)
  - Depressed level of consciousness [Unknown]
  - Pneumonia aspiration [Unknown]
